FAERS Safety Report 7011366 (Version 4)
Quarter: 2013Q1

REPORT INFORMATION
  Report Type: Spontaneous
  Country: US (occurrence: US)
  Receive Date: 20090604
  Receipt Date: 20130208
  Transmission Date: 20140127
  Serious: Yes (Hospitalization, Other)
  Sender: FDA-Public Use
  Company Number: US-ASTRAZENECA-2008UW24106

PATIENT
  Age: 79 Year
  Sex: Female
  Weight: 79.8 kg

DRUGS (13)
  1. NEXIUM [Suspect]
     Indication: GASTROINTESTINAL DISORDER
     Route: 048
  2. TOPROL XL [Suspect]
     Indication: HYPERTENSION
     Route: 048
     Dates: start: 2008
  3. TOPROL XL [Suspect]
     Indication: HYPERTENSION
     Route: 048
  4. PRILOSEC [Suspect]
     Indication: HELICOBACTER INFECTION
     Route: 048
     Dates: start: 1998
  5. ASPIRIN [Suspect]
     Route: 048
  6. BIAXIN [Suspect]
     Indication: HELICOBACTER INFECTION
     Route: 065
  7. NSAID MEDICATION [Suspect]
     Indication: HELICOBACTER INFECTION
     Route: 065
  8. PERCOCET [Suspect]
     Dosage: GENERIC
     Route: 065
  9. COUMADIN [Concomitant]
     Indication: ATRIAL FIBRILLATION
     Route: 048
     Dates: start: 2008
  10. XANAX [Concomitant]
     Indication: ANXIETY
     Route: 048
     Dates: start: 1997
  11. TYLENOL [Concomitant]
     Indication: KNEE ARTHROPLASTY
     Dosage: AS REQUIERD
     Route: 048
     Dates: start: 1998
  12. GAS X [Concomitant]
     Indication: FLATULENCE
     Dosage: AS REQUIRED
     Route: 048
  13. ZANTAC [Concomitant]
     Route: 048

REACTIONS (17)
  - Anaphylactic reaction [Recovered/Resolved]
  - Breast cancer female [Unknown]
  - Parathyroid tumour [Unknown]
  - Basal cell carcinoma [Unknown]
  - Atrial fibrillation [Unknown]
  - Medical device complication [Unknown]
  - Urticaria [Unknown]
  - Neoplasm malignant [Unknown]
  - Lung disorder [Unknown]
  - Abdominal adhesions [Recovered/Resolved]
  - Constipation [Unknown]
  - Musculoskeletal discomfort [Unknown]
  - Gastrointestinal disorder [Unknown]
  - Allergy to animal [Unknown]
  - Tachycardia [Unknown]
  - Rash erythematous [Recovered/Resolved]
  - Drug hypersensitivity [Unknown]
